FAERS Safety Report 4912260-9 (Version None)
Quarter: 2006Q1

REPORT INFORMATION
  Report Type: 
  Country: None (occurrence: None)
  Receive Date: 20060215
  Receipt Date: 20051129
  Transmission Date: 20060701
  Serious: Yes (Hospitalization)
  Sender: FDA-Public Use
  Company Number: US-GLAXOSMITHKLINE-A0583863A

PATIENT
  Age: 91 Year
  Sex: Female

DRUGS (5)
  1. VALTREX [Suspect]
     Dosage: 1G THREE TIMES PER DAY
     Route: 048
     Dates: start: 20051111, end: 20051119
  2. FOSAMAX [Concomitant]
  3. ATIVAN [Concomitant]
  4. SINEMET [Concomitant]
  5. VITAMINS [Concomitant]

REACTIONS (2)
  - RENAL IMPAIRMENT [None]
  - URINE OUTPUT DECREASED [None]
